FAERS Safety Report 18559954 (Version 1)
Quarter: 2020Q4

REPORT INFORMATION
  Report Type: Spontaneous
  Country: DE (occurrence: DE)
  Receive Date: 20201130
  Receipt Date: 20201130
  Transmission Date: 20210114
  Serious: Yes (Hospitalization)
  Sender: FDA-Public Use
  Company Number: NVSC2020DE312920

PATIENT
  Age: 75 Year
  Sex: Male
  Weight: 76 kg

DRUGS (8)
  1. FLUOROURACIL. [Suspect]
     Active Substance: FLUOROURACIL
     Indication: COLORECTAL CANCER METASTATIC
     Dosage: 5208 MG, CYCLIC (QCY)
     Route: 042
     Dates: start: 20190605, end: 20190605
  2. LEUCOVORIN. [Suspect]
     Active Substance: LEUCOVORIN
     Dosage: 651 MG, CYCLIC (QCY)
     Route: 042
     Dates: start: 20190821, end: 20190821
  3. LEUCOVORIN. [Suspect]
     Active Substance: LEUCOVORIN
     Indication: COLORECTAL CANCER METASTATIC
     Dosage: 651 MG, CYCLIC (QCY)
     Route: 042
     Dates: start: 20190605, end: 20190605
  4. FLUOROURACIL. [Suspect]
     Active Substance: FLUOROURACIL
     Dosage: 5208 MG, CYCLIC (QCY)
     Route: 042
     Dates: start: 20190821, end: 20190821
  5. AFLIBERCEPT [Suspect]
     Active Substance: AFLIBERCEPT
     Dosage: 288 MG, CYCLIC (QCY)
     Route: 042
     Dates: start: 20190807
  6. AFLIBERCEPT [Suspect]
     Active Substance: AFLIBERCEPT
     Indication: COLORECTAL CANCER METASTATIC
     Dosage: 288 MG, CYCLIC (QCY)
     Route: 042
     Dates: start: 20190605, end: 20190605
  7. OXALIPLATIN. [Suspect]
     Active Substance: OXALIPLATIN
     Indication: COLORECTAL CANCER METASTATIC
     Dosage: 158 MG, CYCLIC (QCY)
     Route: 042
     Dates: start: 20190605, end: 20190605
  8. OXALIPLATIN. [Suspect]
     Active Substance: OXALIPLATIN
     Dosage: 158 MG, CYCLIC (QCY)
     Route: 042
     Dates: start: 20190821, end: 20190821

REACTIONS (1)
  - Post procedural bile leak [Recovered/Resolved]

NARRATIVE: CASE EVENT DATE: 20191017
